FAERS Safety Report 9812876 (Version 1)
Quarter: 2014Q1

REPORT INFORMATION
  Report Type: Spontaneous
  Country: US (occurrence: US)
  Receive Date: 20140113
  Receipt Date: 20140113
  Transmission Date: 20141002
  Serious: No
  Sender: FDA-Public Use
  Company Number: US-PFIZER INC-2014005388

PATIENT
  Age: 61 Year
  Sex: Male
  Weight: 78.46 kg

DRUGS (5)
  1. TOVIAZ [Suspect]
     Indication: BLADDER DISORDER
     Dosage: 8 MG, DAILY
     Dates: start: 201208
  2. TOVIAZ [Suspect]
     Dosage: 4 MG, DAILY
     Dates: start: 201312
  3. TOVIAZ [Suspect]
     Dosage: 8 MG, DAILY
  4. VIAGRA [Concomitant]
     Indication: ERECTILE DYSFUNCTION
     Dosage: UNK
  5. TRIMIX [Concomitant]
     Indication: ERECTILE DYSFUNCTION
     Dosage: UNK

REACTIONS (2)
  - Intentional drug misuse [Unknown]
  - Drug ineffective [Unknown]
